FAERS Safety Report 23866881 (Version 1)
Quarter: 2024Q2

REPORT INFORMATION
  Report Type: Spontaneous
  Country: US (occurrence: US)
  Receive Date: 20240517
  Receipt Date: 20240517
  Transmission Date: 20240716
  Serious: No
  Sender: FDA-Public Use
  Company Number: US-AUROBINDO-AUR-APL-2023-058149

PATIENT
  Sex: Male

DRUGS (7)
  1. DOXEPIN HYDROCHLORIDE [Suspect]
     Active Substance: DOXEPIN HYDROCHLORIDE
     Indication: Depression
     Dosage: 1 DOSAGE FORM, AT BED TIME
     Route: 065
     Dates: start: 20220823, end: 20220923
  2. DOXEPIN HYDROCHLORIDE [Suspect]
     Active Substance: DOXEPIN HYDROCHLORIDE
     Indication: Sleep disorder
  3. MIRTAZAPINE [Suspect]
     Active Substance: MIRTAZAPINE
     Indication: Product used for unknown indication
     Dosage: UNK
     Route: 065
     Dates: start: 20220823, end: 20220923
  4. MIRTAZAPINE [Concomitant]
     Active Substance: MIRTAZAPINE
     Indication: Product used for unknown indication
     Dosage: UNK
     Route: 065
  5. FLONASE [Concomitant]
     Active Substance: FLUTICASONE PROPIONATE
     Indication: Product used for unknown indication
     Dosage: UNK
     Route: 065
  6. HALDOL [Concomitant]
     Active Substance: HALOPERIDOL
     Indication: Product used for unknown indication
     Dosage: UNK
     Route: 065
  7. FLUOXETINE HYDROCHLORIDE [Concomitant]
     Active Substance: FLUOXETINE HYDROCHLORIDE
     Indication: Product used for unknown indication
     Dosage: UNK
     Route: 065

REACTIONS (4)
  - Nervous system disorder [Recovering/Resolving]
  - Vertigo [Recovering/Resolving]
  - Sexual dysfunction [Recovering/Resolving]
  - Drug ineffective [Unknown]

NARRATIVE: CASE EVENT DATE: 20220823
